FAERS Safety Report 17286629 (Version 1)
Quarter: 2020Q1

REPORT INFORMATION
  Report Type: Spontaneous
  Country: US (occurrence: US)
  Receive Date: 20191231
  Receipt Date: 20191231
  Transmission Date: 20200409
  Serious: Yes (Hospitalization)
  Sender: FDA-Public Use
  Company Number: None

PATIENT
  Age: 84 Year
  Sex: Male

DRUGS (7)
  1. ALBUTER [Concomitant]
  2. PREDNISONE. [Suspect]
     Active Substance: PREDNISONE
  3. AMOXICILLIN. [Concomitant]
     Active Substance: AMOXICILLIN
  4. CEFUROXIME. [Concomitant]
     Active Substance: CEFUROXIME
  5. IPRATROPIUM/SOL [Concomitant]
  6. ESBRIET [Suspect]
     Active Substance: PIRFENIDONE
     Indication: IDIOPATHIC PULMONARY FIBROSIS
     Route: 048
     Dates: start: 20161029
  7. CEPHALEXIN. [Concomitant]
     Active Substance: CEPHALEXIN

REACTIONS (2)
  - Sepsis [None]
  - Pneumonia [None]

NARRATIVE: CASE EVENT DATE: 20191211
